FAERS Safety Report 15133692 (Version 1)
Quarter: 2018Q3

REPORT INFORMATION
  Report Type: Report from Study
  Country: ES (occurrence: ES)
  Receive Date: 20180712
  Receipt Date: 20180712
  Transmission Date: 20181010
  Serious: Yes (Other)
  Sender: FDA-Public Use
  Company Number: ES-TEVA-2018-ES-924082

PATIENT
  Age: 53 Year
  Sex: Male

DRUGS (4)
  1. METFORMIN [Suspect]
     Active Substance: METFORMIN HYDROCHLORIDE
     Indication: DIABETES MELLITUS
     Route: 048
     Dates: start: 20170330
  2. SIMVASTATIN. [Suspect]
     Active Substance: SIMVASTATIN
     Dosage: 0?0?1
     Route: 048
     Dates: start: 20170330
  3. ADIRO 100 MG COMPRIMIDOS GASTRORRESISTENTES EFG , 30 COMPRIMIDOS [Concomitant]
     Active Substance: ASPIRIN
     Dosage: 0?1?0
     Route: 048
     Dates: start: 20170330
  4. DULAGLUTIDA (9097A) [Suspect]
     Active Substance: DULAGLUTIDE
     Route: 058
     Dates: start: 20170330

REACTIONS (2)
  - Hyperamylasaemia [Unknown]
  - Lipase increased [Not Recovered/Not Resolved]

NARRATIVE: CASE EVENT DATE: 20170905
